FAERS Safety Report 8584098-5 (Version None)
Quarter: 2012Q3

REPORT INFORMATION
  Report Type: 
  Country: None (occurrence: None)
  Receive Date: 20120810
  Receipt Date: 20120726
  Transmission Date: 20120928
  Serious: Yes (Other)
  Sender: FDA-Public Use
  Company Number: US-009507513-1207USA011972

PATIENT

DRUGS (3)
  1. PEGASYS [Suspect]
     Route: 058
  2. REBETOL [Suspect]
     Dosage: FRO 36 WEEKS LENGTH OF THERAPY
     Route: 048
  3. VICTRELIS [Suspect]
     Route: 048

REACTIONS (9)
  - LIP SWELLING [None]
  - HEADACHE [None]
  - RENAL PAIN [None]
  - ASTHENIA [None]
  - ANURIA [None]
  - APHAGIA [None]
  - STOMATITIS [None]
  - PYREXIA [None]
  - URTICARIA [None]
